FAERS Safety Report 9196121 (Version 1)
Quarter: 2013Q1

REPORT INFORMATION
  Report Type: Spontaneous
  Country: GB (occurrence: GB)
  Receive Date: 20130328
  Receipt Date: 20130328
  Transmission Date: 20140127
  Serious: Yes (Other)
  Sender: FDA-Public Use
  Company Number: GB-RANBAXY-2013R1-66425

PATIENT
  Sex: Male

DRUGS (3)
  1. NAPROXEN [Suspect]
     Indication: HERNIA PAIN
     Dosage: 250 MG, QD
     Route: 065
     Dates: start: 20120706
  2. NAPROXEN [Suspect]
     Indication: HERNIA PAIN
     Dosage: 250 MG, BID
     Route: 065
  3. TRAMADOL [Concomitant]
     Indication: PRODUCT USED FOR UNKNOWN INDICATION
     Dosage: UNK
     Route: 065

REACTIONS (2)
  - Depression [Recovered/Resolved]
  - Suicidal ideation [Recovered/Resolved]
